FAERS Safety Report 23984690 (Version 3)
Quarter: 2024Q3

REPORT INFORMATION
  Report Type: Spontaneous
  Country: CA (occurrence: CA)
  Receive Date: 20240618
  Receipt Date: 20240917
  Transmission Date: 20241017
  Serious: Yes (Hospitalization)
  Sender: CELLTRION
  Company Number: CA-PFIZER INC-202200122553

PATIENT

DRUGS (5)
  1. INFLECTRA [Suspect]
     Active Substance: INFLIXIMAB-DYYB
     Indication: Colitis ulcerative
     Dosage: 350 MG SUPPOSED TO RECEIVE 5 MG/KG
     Route: 042
     Dates: start: 20220119
  2. INFLECTRA [Suspect]
     Active Substance: INFLIXIMAB-DYYB
     Dosage: 5 MG/KG Q 6, THEN EVERY 8 WEEKS
     Route: 042
     Dates: start: 20220322
  3. INFLECTRA [Suspect]
     Active Substance: INFLIXIMAB-DYYB
     Dosage: 400 MG, INDUCTION AT WEEK 0, 2 AND 6, THEN EVERY 8 WEEKS - HOSPITAL START
     Route: 042
     Dates: start: 20240527
  4. TYLENOL [Concomitant]
     Active Substance: ACETAMINOPHEN
  5. PREDNISOLONE [Concomitant]
     Active Substance: PREDNISOLONE

REACTIONS (1)
  - Condition aggravated [Recovering/Resolving]

NARRATIVE: CASE EVENT DATE: 20240501
